FAERS Safety Report 14731522 (Version 9)
Quarter: 2018Q3

REPORT INFORMATION
  Report Type: Spontaneous
  Country: FR (occurrence: FR)
  Receive Date: 20180407
  Receipt Date: 20180816
  Transmission Date: 20181010
  Serious: Yes (Life-Threatening, Other)
  Sender: FDA-Public Use
  Company Number: FR-AUROBINDO-AUR-APL-2018-018155

PATIENT
  Age: 77 Year
  Sex: Male

DRUGS (18)
  1. STILNOX [Concomitant]
     Active Substance: ZOLPIDEM TARTRATE
     Indication: SLEEP DISORDER
     Dosage: 10 MILLIGRAM, ONCE A DAY
     Route: 048
     Dates: end: 20180211
  2. ALLOPURINOL. [Concomitant]
     Active Substance: ALLOPURINOL
     Indication: PRODUCT USED FOR UNKNOWN INDICATION
     Dosage: 100 MILLIGRAM, DAILY
     Route: 048
  3. ATORVASTATIN [Concomitant]
     Active Substance: ATORVASTATIN
     Indication: DYSLIPIDAEMIA
     Dosage: 20 MILLIGRAM, DAILY
     Route: 048
  4. METFORMINE ARROW [Concomitant]
     Active Substance: METFORMIN HYDROCHLORIDE
     Indication: TYPE 2 DIABETES MELLITUS
     Dosage: 1500 MILLIGRAM, DAILY (500 MILLIGRAM, 3 TIMES A DAY)
     Route: 048
  5. DIFFU K [Suspect]
     Active Substance: POTASSIUM CHLORIDE
     Dosage: 1800 MG, UNK
     Route: 048
     Dates: start: 20180206, end: 20180212
  6. JANUVIA [Suspect]
     Active Substance: SITAGLIPTIN PHOSPHATE
     Indication: TYPE 2 DIABETES MELLITUS
     Dosage: 50 MILLIGRAM, ONCE A DAY
     Route: 048
     Dates: start: 20180208
  7. LYRICA [Suspect]
     Active Substance: PREGABALIN
     Indication: DRUG ADMINISTRATION ERROR
     Dosage: 25 MG,UNK
     Route: 048
     Dates: start: 20180212, end: 20180212
  8. RAMIPRIL MYLAN [Suspect]
     Active Substance: RAMIPRIL
     Indication: DRUG ADMINISTRATION ERROR
     Dosage: 2.5 MILLIGRAM
     Route: 048
     Dates: start: 20180212, end: 20180212
  9. NOVORAPID [Suspect]
     Active Substance: INSULIN ASPART
     Indication: DIABETES MELLITUS
     Dosage: 1 DOSAGE FORM, AS NECESSARY
     Route: 058
     Dates: start: 20180206
  10. ENTRESTO [Concomitant]
     Active Substance: SACUBITRIL\VALSARTAN
     Indication: CARDIAC FAILURE
     Dosage: 1 DF,QOD
     Route: 048
     Dates: end: 20180206
  11. ATENOLOL ARROW FILM?COATED TABLET [Suspect]
     Active Substance: ATENOLOL
     Indication: DRUG ADMINISTRATION ERROR
     Dosage: 7.5 MILLIGRAM, UNK
     Route: 048
     Dates: start: 20180212, end: 20180212
  12. OXYBUTYNIN. [Suspect]
     Active Substance: OXYBUTYNIN CHLORIDE
     Indication: DRUG ADMINISTRATION ERROR
     Dosage: 5 MILLIGRAM
     Route: 048
     Dates: start: 20180212, end: 20180212
  13. LOXEN                              /00639802/ [Suspect]
     Active Substance: NICARDIPINE HYDROCHLORIDE
     Indication: DRUG ADMINISTRATION ERROR
     Dosage: 50 MILLIGRAM
     Route: 048
     Dates: start: 20180212, end: 20180212
  14. KARDEGIC [Suspect]
     Active Substance: ASPIRIN DL-LYSINE
     Indication: MYOCARDIAL ISCHAEMIA
     Dosage: 75 MILLIGRAM, ONCE A DAY
     Route: 048
     Dates: start: 20120218
  15. FUROSEMIDE ARROW [Suspect]
     Active Substance: FUROSEMIDE
     Indication: CARDIAC FAILURE
     Dosage: 40 MILLIGRAM, DAILY
     Route: 048
     Dates: start: 20180209, end: 20180216
  16. DIFFU K [Suspect]
     Active Substance: POTASSIUM CHLORIDE
     Indication: HYPOKALAEMIA
     Dosage: 600 MILLIGRAM
     Route: 048
     Dates: start: 20180212
  17. BISOCE [Suspect]
     Active Substance: BISOPROLOL
     Indication: MYOCARDIAL ISCHAEMIA
     Dosage: 1.25 MILLIGRAM, ONCE A DAY
     Route: 048
     Dates: end: 20180213
  18. ENTRESTO [Concomitant]
     Active Substance: SACUBITRIL\VALSARTAN
     Dosage: 2 DOSAGE FORM, ONCE A DAY
     Route: 048
     Dates: start: 20180206

REACTIONS (4)
  - Cardiac failure [Not Recovered/Not Resolved]
  - Cardiac output decreased [Not Recovered/Not Resolved]
  - Confusional state [Recovered/Resolved]
  - Cardiovascular insufficiency [Not Recovered/Not Resolved]

NARRATIVE: CASE EVENT DATE: 20180212
